FAERS Safety Report 17426857 (Version 1)
Quarter: 2020Q1

REPORT INFORMATION
  Report Type: Spontaneous
  Country: US (occurrence: US)
  Receive Date: 20200217
  Receipt Date: 20200217
  Transmission Date: 20200409
  Serious: No
  Sender: FDA-Public Use
  Company Number: US-BAYER-2020-026385

PATIENT

DRUGS (1)
  1. STIVARGA [Suspect]
     Active Substance: REGORAFENIB
     Indication: OSTEOSARCOMA
     Dosage: 160 MG, ONCE DAILY FOR FIRST 21 DAYS
     Route: 048
     Dates: start: 202001

REACTIONS (3)
  - Product use in unapproved indication [None]
  - Off label use [None]
  - Impaired healing [None]

NARRATIVE: CASE EVENT DATE: 202001
